FAERS Safety Report 13908810 (Version 2)
Quarter: 2017Q3

REPORT INFORMATION
  Report Type: Report from Study
  Country: None (occurrence: UY)
  Receive Date: 20170827
  Receipt Date: 20170831
  Transmission Date: 20171127
  Serious: Yes (Other)
  Sender: FDA-Public Use
  Company Number: UY-ABBVIE-17K-168-2083822-00

PATIENT
  Age: 47 Year
  Sex: Male

DRUGS (1)
  1. HUMIRA [Suspect]
     Active Substance: ADALIMUMAB
     Indication: RHEUMATOID ARTHRITIS
     Route: 058
     Dates: start: 20160802

REACTIONS (6)
  - Mental disorder [Unknown]
  - Hyperglycaemia [Recovered/Resolved]
  - Skin discolouration [Unknown]
  - Hypertension [Recovering/Resolving]
  - Facial paralysis [Unknown]
  - Rash [Unknown]

NARRATIVE: CASE EVENT DATE: 20170728
